FAERS Safety Report 5903877-3 (Version None)
Quarter: 2008Q3

REPORT INFORMATION
  Report Type: 
  Country: None (occurrence: None)
  Receive Date: 20080919
  Receipt Date: 20080609
  Transmission Date: 20090109
  Serious: No
  Sender: FDA-Public Use
  Company Number: US-WYE-H04420108

PATIENT
  Age: 64 Year
  Sex: Female
  Weight: 63.56 kg

DRUGS (3)
  1. PRISTIQ   (DESVENLAFAXINE SUCCINATE MONOHYDRATE, TABLET [Suspect]
     Indication: ANXIETY
     Dosage: 50 MG 1X PER 1 DAY, ORAL
     Route: 048
     Dates: start: 20080606
  2. PRISTIQ   (DESVENLAFAXINE SUCCINATE MONOHYDRATE, TABLET [Suspect]
     Indication: DEPRESSION
     Dosage: 50 MG 1X PER 1 DAY, ORAL
     Route: 048
     Dates: start: 20080606
  3. ZOCOR [Concomitant]

REACTIONS (3)
  - BURNING SENSATION [None]
  - DIARRHOEA [None]
  - URTICARIA [None]
